FAERS Safety Report 9364226 (Version 2)
Quarter: 2013Q3

REPORT INFORMATION
  Report Type: Spontaneous
  Country: US (occurrence: US)
  Receive Date: 20130624
  Receipt Date: 20130805
  Transmission Date: 20140515
  Serious: Yes (Hospitalization)
  Sender: FDA-Public Use
  Company Number: US-PFIZER INC-2013187428

PATIENT
  Age: 67 Year
  Sex: Male
  Weight: 117 kg

DRUGS (1)
  1. LYRICA [Suspect]
     Indication: ARTHRITIS
     Dosage: 150 MG, 2X/DAY
     Dates: start: 20130612, end: 201306

REACTIONS (9)
  - Off label use [Unknown]
  - Aphagia [Unknown]
  - Dysphagia [Unknown]
  - Dyspnoea [Unknown]
  - Stomatitis [Unknown]
  - Limb discomfort [Unknown]
  - Local swelling [Unknown]
  - Rash [Unknown]
  - Dysgeusia [Unknown]
